FAERS Safety Report 13403935 (Version 1)
Quarter: 2017Q2

REPORT INFORMATION
  Report Type: Spontaneous
  Country: GB (occurrence: GB)
  Receive Date: 20170405
  Receipt Date: 20170405
  Transmission Date: 20170830
  Serious: Yes (Other)
  Sender: FDA-Public Use
  Company Number: GB-TORRENT-00015145

PATIENT
  Age: 68 Year
  Sex: Male

DRUGS (6)
  1. ATORVASTATIN [Concomitant]
     Active Substance: ATORVASTATIN
  2. TOLTERODINE [Concomitant]
     Active Substance: TOLTERODINE
  3. AMLODIPINE [Suspect]
     Active Substance: AMLODIPINE BESYLATE
  4. LEUPRORELIN/LEUPRORELIN ACETATE [Concomitant]
  5. BISOPROLOL [Concomitant]
     Active Substance: BISOPROLOL
  6. TAMSULOSIN/TAMSULOSIN HYDROCHLORIDE [Concomitant]

REACTIONS (3)
  - Drug eruption [Recovered/Resolved with Sequelae]
  - Drug hypersensitivity [Unknown]
  - Skin lesion [Not Recovered/Not Resolved]

NARRATIVE: CASE EVENT DATE: 20161201
